FAERS Safety Report 8533126-1 (Version None)
Quarter: 2012Q3

REPORT INFORMATION
  Report Type: 
  Country: None (occurrence: None)
  Receive Date: 20120724
  Receipt Date: 20120717
  Transmission Date: 20120928
  Serious: Yes (Other)
  Sender: FDA-Public Use
  Company Number: CR-JNJFOC-20120703310

PATIENT
  Sex: Male
  Weight: 78 kg

DRUGS (4)
  1. NICORETTE [Suspect]
     Route: 062
  2. NICORETTE [Suspect]
     Route: 062
  3. NICORETTE [Suspect]
     Indication: SMOKING CESSATION THERAPY
     Dosage: USED 3 PATCHES
     Route: 062
  4. NICORETTE [Suspect]
     Indication: SMOKING CESSATION THERAPY
     Route: 062
     Dates: start: 20120601, end: 20120703

REACTIONS (5)
  - DIZZINESS [None]
  - BALANCE DISORDER [None]
  - INAPPROPRIATE SCHEDULE OF DRUG ADMINISTRATION [None]
  - OVERDOSE [None]
  - PALLOR [None]
